FAERS Safety Report 9050272 (Version 2)
Quarter: 2013Q1

REPORT INFORMATION
  Report Type: Spontaneous
  Country: IT (occurrence: IT)
  Receive Date: 20130205
  Receipt Date: 20130211
  Transmission Date: 20140127
  Serious: Yes (Other)
  Sender: FDA-Public Use
  Company Number: IT-PFIZER INC-2013048666

PATIENT
  Age: 70 Year
  Sex: Female

DRUGS (13)
  1. LYRICA [Suspect]
     Indication: DIABETIC NEUROPATHY
     Dosage: 25 MG, 1X/DAY
     Route: 048
     Dates: start: 20121001, end: 20130110
  2. NOVORAPID [Concomitant]
     Dosage: UNK
     Route: 065
  3. VICTOZA [Concomitant]
     Dosage: UNK
     Route: 058
  4. TRIATEC [Concomitant]
     Dosage: UNK
     Route: 065
  5. LASIX [Concomitant]
     Dosage: UNK
     Route: 065
  6. ANTRA [Concomitant]
     Dosage: UNK
     Route: 065
  7. CATAPRESAN [Concomitant]
     Dosage: UNK
     Route: 065
  8. ZYLORIC [Concomitant]
     Dosage: UNK
     Route: 065
  9. TENORMIN [Concomitant]
     Dosage: UNK
     Route: 065
  10. INEGY [Concomitant]
     Dosage: UNK
     Route: 065
  11. CARDIOASPIRIN [Concomitant]
     Dosage: UNK
     Route: 065
  12. KARVEA [Concomitant]
     Dosage: UNK
     Route: 065
  13. CARDURA [Concomitant]
     Dosage: UNK
     Route: 065

REACTIONS (1)
  - Hallucination, visual [Recovered/Resolved]
